FAERS Safety Report 5157898-1 (Version None)
Quarter: 2006Q4

REPORT INFORMATION
  Report Type: 
  Country: None (occurrence: None)
  Receive Date: 20061122
  Receipt Date: 20061122
  Transmission Date: 20070319
  Serious: Yes (Other)
  Sender: FDA-Public Use
  Company Number: None

PATIENT
  Age: 47 Year
  Sex: Male
  Weight: 131.5431 kg

DRUGS (1)
  1. OXYCET [Suspect]
     Indication: SURGERY
     Dosage: 2 EVERY 4 TO 6 HOURS
     Dates: start: 20061013

REACTIONS (2)
  - DRUG INEFFECTIVE [None]
  - INCORRECT DOSE ADMINISTERED [None]
